FAERS Safety Report 24306931 (Version 2)
Quarter: 2024Q3

REPORT INFORMATION
  Report Type: Report from Study
  Country: AU (occurrence: AU)
  Receive Date: 20240911
  Receipt Date: 20240916
  Transmission Date: 20241017
  Serious: No
  Sender: NOVARTIS
  Company Number: AU-002147023-NVSC2024AU179291

PATIENT
  Sex: Male

DRUGS (1)
  1. KYMRIAH [Suspect]
     Active Substance: TISAGENLECLEUCEL
     Indication: B-cell type acute leukaemia
     Dosage: 1E8 CAR T CELLS, ONCE/SINGLE
     Route: 042
     Dates: start: 20240529

REACTIONS (1)
  - Post-depletion B-cell recovery [Unknown]
